FAERS Safety Report 24605868 (Version 4)
Quarter: 2024Q4

REPORT INFORMATION
  Report Type: Report from Study
  Country: JP (occurrence: JP)
  Receive Date: 20241111
  Receipt Date: 20241209
  Transmission Date: 20250114
  Serious: Yes (Hospitalization, Other)
  Sender: BRISTOL-MYERS SQUIBB COMPANY
  Company Number: JP-BRISTOL-MYERS SQUIBB COMPANY-2024-174625

PATIENT
  Age: 64 Year
  Sex: Male
  Weight: 51.4 kg

DRUGS (6)
  1. YERVOY [Suspect]
     Active Substance: IPILIMUMAB
     Indication: Non-small cell lung cancer
     Dosage: 2 DOSES
     Route: 041
     Dates: start: 20240607, end: 20240703
  2. OPDIVO [Suspect]
     Active Substance: NIVOLUMAB
     Indication: Non-small cell lung cancer
     Dosage: 3 DOSES
     Route: 041
     Dates: start: 20240124, end: 20240313
  3. OPDIVO [Suspect]
     Active Substance: NIVOLUMAB
     Route: 041
     Dates: start: 20240607, end: 20240607
  4. OPDIVO [Suspect]
     Active Substance: NIVOLUMAB
     Route: 041
     Dates: start: 20240703, end: 20240703
  5. CISPLATIN [Concomitant]
     Active Substance: CISPLATIN
     Indication: Non-small cell lung cancer
     Dosage: 3 DOSES
     Dates: start: 20240124, end: 20240313
  6. PEMETREXED [Concomitant]
     Active Substance: PEMETREXED
     Indication: Non-small cell lung cancer
     Dosage: 3 DOSES
     Dates: start: 20240124, end: 20240313

REACTIONS (8)
  - Cytokine release syndrome [Recovered/Resolved]
  - Non-small cell lung cancer [Unknown]
  - Dyspnoea [Unknown]
  - Pyrexia [Unknown]
  - Blood pressure decreased [Unknown]
  - Tachycardia [Unknown]
  - Rash [Unknown]
  - Platelet count decreased [Unknown]

NARRATIVE: CASE EVENT DATE: 20240609
